FAERS Safety Report 8802636 (Version 2)
Quarter: 2015Q1

REPORT INFORMATION
  Report Type: Report from Study
  Country: US (occurrence: US)
  Receive Date: 20120921
  Receipt Date: 20150304
  Transmission Date: 20150721
  Serious: Yes (Death)
  Sender: FDA-Public Use
  Company Number: US-ROCHE-1097800

PATIENT
  Age: 74 Year
  Sex: Male

DRUGS (19)
  1. COLCHICINE. [Suspect]
     Active Substance: COLCHICINE
     Dosage: AS NEEDED
     Route: 065
  2. TAXOTERE [Concomitant]
     Active Substance: DOCETAXEL
     Route: 065
  3. AVASTIN [Suspect]
     Active Substance: BEVACIZUMAB
     Indication: OFF LABEL USE
     Dosage: DATE THERAPY RECEIVED: 30/NOV/2005
     Route: 042
  4. GEMZAR [Concomitant]
     Active Substance: GEMCITABINE HYDROCHLORIDE
     Route: 065
  5. PEPCID [Concomitant]
     Active Substance: FAMOTIDINE
     Route: 065
  6. TYLENOL [Concomitant]
     Active Substance: ACETAMINOPHEN
     Route: 065
  7. MOTRIN [Concomitant]
     Active Substance: IBUPROFEN
  8. GEMZAR [Concomitant]
     Active Substance: GEMCITABINE HYDROCHLORIDE
     Route: 065
  9. DECADRON [Concomitant]
     Active Substance: DEXAMETHASONE
     Route: 065
  10. BENADRYL [Concomitant]
     Active Substance: DIPHENHYDRAMINE HYDROCHLORIDE
     Route: 065
  11. AVASTIN [Suspect]
     Active Substance: BEVACIZUMAB
     Indication: LUNG NEOPLASM MALIGNANT
     Dosage: 15 MG/KG
     Route: 042
     Dates: start: 20051109
  12. TAXOTERE [Concomitant]
     Active Substance: DOCETAXEL
     Route: 065
  13. GEMZAR [Concomitant]
     Active Substance: GEMCITABINE HYDROCHLORIDE
     Route: 065
  14. LEVAQUIN [Concomitant]
     Active Substance: LEVOFLOXACIN
  15. COLCHICINE. [Suspect]
     Active Substance: COLCHICINE
     Indication: PRODUCT USED FOR UNKNOWN INDICATION
     Dosage: 2 TABLETS
     Route: 065
  16. ALOXI [Concomitant]
     Active Substance: PALONOSETRON HYDROCHLORIDE
     Route: 065
  17. DOXAZOSIN [Concomitant]
     Active Substance: DOXAZOSIN\DOXAZOSIN MESYLATE
     Route: 065
  18. LOVASTATIN. [Concomitant]
     Active Substance: LOVASTATIN
     Route: 065
  19. ATENOLOL. [Concomitant]
     Active Substance: ATENOLOL
     Route: 065

REACTIONS (24)
  - Pain in extremity [Unknown]
  - Diarrhoea [Unknown]
  - Gout [Recovered/Resolved]
  - Hypercholesterolaemia [Unknown]
  - Tachypnoea [Unknown]
  - Muscular weakness [Unknown]
  - Viral infection [Unknown]
  - Death [Fatal]
  - Chronic obstructive pulmonary disease [Unknown]
  - Productive cough [Unknown]
  - Off label use [Unknown]
  - Epistaxis [Unknown]
  - Dyspnoea exertional [Unknown]
  - Dyspnoea [Unknown]
  - Hypoxia [Unknown]
  - Infection [Unknown]
  - Cough [Unknown]
  - Hyponatraemia [Unknown]
  - Obesity [Unknown]
  - Pain [Unknown]
  - Arthralgia [Unknown]
  - Cyanosis [Unknown]
  - Oedema peripheral [Unknown]
  - Emphysema [Unknown]

NARRATIVE: CASE EVENT DATE: 20051220
